FAERS Safety Report 4472696-X (Version None)
Quarter: 2004Q4

REPORT INFORMATION
  Report Type: 
  Country: None (occurrence: None)
  Receive Date: 20041013
  Receipt Date: 20041005
  Transmission Date: 20050328
  Serious: Yes (Hospitalization)
  Sender: FDA-Public Use
  Company Number: US-JNJFOC-20040706684

PATIENT
  Age: 47 Year
  Sex: Male

DRUGS (5)
  1. DURAGESIC [Suspect]
     Route: 062
     Dates: start: 20020101
  2. DURAGESIC [Suspect]
     Route: 062
     Dates: start: 20020101
  3. DURAGESIC [Suspect]
     Route: 062
     Dates: start: 20020101
  4. PERCOCET [Concomitant]
     Route: 049
  5. PERCOCET [Concomitant]
     Indication: PAIN
     Dosage: TAKES AS NEEDED
     Route: 049

REACTIONS (5)
  - ANOREXIA [None]
  - CONFUSIONAL STATE [None]
  - DIARRHOEA [None]
  - DIZZINESS [None]
  - MENTAL IMPAIRMENT [None]
